FAERS Safety Report 7022156-7 (Version None)
Quarter: 2010Q3

REPORT INFORMATION
  Report Type: 
  Country: None (occurrence: None)
  Receive Date: 20100930
  Receipt Date: 20100921
  Transmission Date: 20110219
  Serious: Yes (Hospitalization, Other)
  Sender: FDA-Public Use
  Company Number: PHHY2010US50574

PATIENT
  Sex: Male
  Weight: 84.807 kg

DRUGS (2)
  1. EXJADE [Suspect]
     Indication: IRON OVERLOAD
     Dosage: 250 MG, TID
     Route: 048
  2. IBUPROFEN [Suspect]
     Indication: PAIN
     Route: 048

REACTIONS (4)
  - HAEMATURIA [None]
  - INFECTION [None]
  - NEPHROLITHIASIS [None]
  - THROMBOCYTOPENIA [None]
